FAERS Safety Report 21708519 (Version 4)
Quarter: 2024Q1

REPORT INFORMATION
  Report Type: Report from Study
  Country: US (occurrence: US)
  Receive Date: 20221210
  Receipt Date: 20240331
  Transmission Date: 20240409
  Serious: Yes (Other)
  Sender: FDA-Public Use
  Company Number: US-002147023-NVSC2022US283102

PATIENT
  Sex: Male

DRUGS (2)
  1. MEKINIST [Suspect]
     Active Substance: TRAMETINIB DIMETHYL SULFOXIDE
     Indication: Neoplasm malignant
     Dosage: UNK
     Route: 065
  2. TAFINLAR [Suspect]
     Active Substance: DABRAFENIB MESYLATE
     Indication: Neoplasm malignant
     Dosage: UNK
     Route: 065

REACTIONS (8)
  - Hypothyroidism [Unknown]
  - Mental disorder [Unknown]
  - Oropharyngeal pain [Unknown]
  - Rash [Unknown]
  - Chills [Unknown]
  - Pruritus [Unknown]
  - Dizziness [Unknown]
  - Dry mouth [Unknown]
